FAERS Safety Report 18393516 (Version 1)
Quarter: 2020Q4

REPORT INFORMATION
  Report Type: Spontaneous
  Country: GB (occurrence: GB)
  Receive Date: 20201016
  Receipt Date: 20201016
  Transmission Date: 20210114
  Serious: Yes (Hospitalization, Other)
  Sender: FDA-Public Use
  Company Number: GB-TEVA-2020-GB-1839488

PATIENT
  Sex: Male

DRUGS (3)
  1. RADIUM 223 [Suspect]
     Active Substance: RADIUM RA-223 DICHLORIDE
     Indication: PROSTATE CANCER METASTATIC
     Route: 065
     Dates: start: 2017, end: 2017
  2. DOCETAXEL. [Suspect]
     Active Substance: DOCETAXEL
     Indication: PROSTATE CANCER METASTATIC
     Dosage: 8 CYCLES IN TOTAL
     Route: 065
     Dates: end: 2016
  3. DEXAMETHASONE. [Suspect]
     Active Substance: DEXAMETHASONE
     Indication: PROSTATE CANCER METASTATIC
     Dosage: 16 MILLIGRAM DAILY;
     Route: 065

REACTIONS (3)
  - Myelosuppression [Unknown]
  - Nocardiosis [Recovering/Resolving]
  - Pancytopenia [Unknown]
